FAERS Safety Report 8152178-4 (Version None)
Quarter: 2012Q1

REPORT INFORMATION
  Report Type: 
  Country: None (occurrence: None)
  Receive Date: 20120215
  Receipt Date: 20120215
  Transmission Date: 20120608
  Serious: No
  Sender: FDA-Public Use
  Company Number: None

PATIENT
  Sex: Female

DRUGS (2)
  1. PILOPINE HS [Suspect]
     Indication: OPEN ANGLE GLAUCOMA
     Dosage: 1 GTT OS QHS
     Dates: start: 20070403, end: 20090901
  2. ALPHAGAN [Suspect]
     Indication: OPEN ANGLE GLAUCOMA
     Dosage: 1 GTT OS BID  PRIOR TO MARCH 2007

REACTIONS (2)
  - DRUG HYPERSENSITIVITY [None]
  - CONJUNCTIVAL IRRITATION [None]
